FAERS Safety Report 9089795 (Version 1)
Quarter: 2013Q1

REPORT INFORMATION
  Report Type: Spontaneous
  Country: US (occurrence: US)
  Receive Date: 20130218
  Receipt Date: 20130218
  Transmission Date: 20140127
  Serious: No
  Sender: FDA-Public Use
  Company Number: US-ABBOTT-12P-163-0932452-00

PATIENT
  Age: 41 Year
  Sex: Female
  Weight: 80.81 kg

DRUGS (3)
  1. SIMCOR 500MG/20MG [Suspect]
     Indication: BLOOD CHOLESTEROL
     Dosage: 500/20
     Dates: start: 20120425
  2. EXAPRO [Concomitant]
     Indication: BIPOLAR DISORDER
  3. TRILIPTAL [Concomitant]
     Indication: BIPOLAR DISORDER

REACTIONS (5)
  - Mobility decreased [Not Recovered/Not Resolved]
  - Nausea [Not Recovered/Not Resolved]
  - Vomiting [Not Recovered/Not Resolved]
  - Musculoskeletal discomfort [Not Recovered/Not Resolved]
  - Myalgia [Not Recovered/Not Resolved]
